FAERS Safety Report 8312537-3 (Version None)
Quarter: 2012Q2

REPORT INFORMATION
  Report Type: 
  Country: None (occurrence: None)
  Receive Date: 20120425
  Receipt Date: 20120423
  Transmission Date: 20120825
  Serious: Yes (Hospitalization)
  Sender: FDA-Public Use
  Company Number: PHHY2012TN034390

PATIENT
  Age: 33 Year
  Sex: Female

DRUGS (4)
  1. HYDROXYZINE [Suspect]
     Indication: PSORIASIS
     Route: 048
  2. HYDROXYZINE [Suspect]
     Dosage: 1 DF, UNK
     Route: 048
  3. BETAMETHASONE [Concomitant]
  4. VASELINE [Concomitant]

REACTIONS (10)
  - RASH ERYTHEMATOUS [None]
  - SKIN LESION [None]
  - HEART RATE INCREASED [None]
  - DERMATITIS EXFOLIATIVE [None]
  - PYREXIA [None]
  - CHILLS [None]
  - RASH MACULO-PAPULAR [None]
  - PRURITUS [None]
  - OEDEMA PERIPHERAL [None]
  - BLOOD PRESSURE DIASTOLIC DECREASED [None]
